FAERS Safety Report 5746383-1 (Version None)
Quarter: 2008Q2

REPORT INFORMATION
  Report Type: 
  Country: None (occurrence: None)
  Receive Date: 20080521
  Receipt Date: 20080514
  Transmission Date: 20081010
  Serious: Yes (Other)
  Sender: FDA-Public Use
  Company Number: APP200800398

PATIENT
  Age: 53 Year
  Sex: Male
  Weight: 84.99 kg

DRUGS (2)
  1. HEPARIN SODIUM INJECTION [Suspect]
     Indication: DEEP VEIN THROMBOSIS
     Dosage: INJECTION
     Dates: start: 20080301
  2. LOVENOX [Suspect]
     Indication: DEEP VEIN THROMBOSIS
     Dosage: 90 MG, 2 IN 1 D, SUBCUTANEOUS
     Route: 058
     Dates: start: 20080306, end: 20080307

REACTIONS (3)
  - ABDOMINAL PAIN UPPER [None]
  - CHEST PAIN [None]
  - PULMONARY EMBOLISM [None]
